FAERS Safety Report 5948904-2 (Version None)
Quarter: 2008Q4

REPORT INFORMATION
  Report Type: 
  Country: None (occurrence: None)
  Receive Date: 20081111
  Receipt Date: 20081030
  Transmission Date: 20090506
  Serious: Yes (Other)
  Sender: FDA-Public Use
  Company Number: GB-PFIZER INC-2008092217

PATIENT
  Sex: Male

DRUGS (1)
  1. TOLTERODINE [Suspect]

REACTIONS (2)
  - LIP SWELLING [None]
  - SWOLLEN TONGUE [None]
